FAERS Safety Report 19287642 (Version 1)
Quarter: 2021Q2

REPORT INFORMATION
  Report Type: Spontaneous
  Country: CA (occurrence: CA)
  Receive Date: 20210521
  Receipt Date: 20210521
  Transmission Date: 20210717
  Serious: Yes (Death)
  Sender: FDA-Public Use
  Company Number: CA-JNJFOC-20210532324

PATIENT
  Age: 78 Year
  Sex: Male

DRUGS (4)
  1. ZYKADIA [Suspect]
     Active Substance: CERITINIB
     Route: 048
  2. IMODIUM [Suspect]
     Active Substance: LOPERAMIDE HYDROCHLORIDE
     Indication: PRODUCT USED FOR UNKNOWN INDICATION
     Route: 065
  3. ZYKADIA [Suspect]
     Active Substance: CERITINIB
     Indication: NON-SMALL CELL LUNG CANCER
     Route: 048
  4. ZYKADIA [Suspect]
     Active Substance: CERITINIB
     Route: 048

REACTIONS (8)
  - Hepatic enzyme increased [Fatal]
  - Death [Fatal]
  - Haemoptysis [Fatal]
  - Constipation [Fatal]
  - Illness [Fatal]
  - Abdominal pain [Fatal]
  - Diarrhoea [Fatal]
  - Vision blurred [Fatal]
